FAERS Safety Report 24569950 (Version 1)
Quarter: 2024Q4

REPORT INFORMATION
  Report Type: Spontaneous
  Country: US (occurrence: None)
  Receive Date: 20241031
  Receipt Date: 20241031
  Transmission Date: 20250114
  Serious: Yes (Hospitalization)
  Sender: Public
  Company Number: None

PATIENT
  Sex: Female

DRUGS (1)
  1. ZEPBOUND [Suspect]
     Active Substance: TIRZEPATIDE
     Dates: start: 20240101, end: 20240215

REACTIONS (2)
  - Anorexia nervosa [None]
  - Disease recurrence [None]

NARRATIVE: CASE EVENT DATE: 20241009
